FAERS Safety Report 12561863 (Version 2)
Quarter: 2016Q3

REPORT INFORMATION
  Report Type: Spontaneous
  Country: CA (occurrence: CA)
  Receive Date: 20160715
  Receipt Date: 20160805
  Transmission Date: 20161109
  Serious: Yes (Hospitalization)
  Sender: FDA-Public Use
  Company Number: CA-JNJFOC-20160708429

PATIENT
  Age: 61 Year
  Sex: Female
  Weight: 54.43 kg

DRUGS (9)
  1. ADALAT [Concomitant]
     Active Substance: NIFEDIPINE
     Route: 065
  2. AVAPRO [Concomitant]
     Active Substance: IRBESARTAN
     Indication: COUGH
     Route: 065
  3. LANTUS [Concomitant]
     Active Substance: INSULIN GLARGINE
     Indication: TYPE 2 DIABETES MELLITUS
     Dosage: AT NIGHT
     Route: 058
  4. OLMETEC [Concomitant]
     Active Substance: OLMESARTAN MEDOXOMIL
     Route: 065
  5. GLUCOPHAGE [Concomitant]
     Active Substance: METFORMIN HYDROCHLORIDE
     Indication: COUGH
     Route: 065
  6. INVOKANA [Suspect]
     Active Substance: CANAGLIFLOZIN
     Indication: TYPE 2 DIABETES MELLITUS
     Route: 048
     Dates: start: 20151119, end: 20151211
  7. JANUVIA [Concomitant]
     Active Substance: SITAGLIPTIN PHOSPHATE
     Route: 048
  8. INVOKANA [Suspect]
     Active Substance: CANAGLIFLOZIN
     Indication: TYPE 2 DIABETES MELLITUS
     Route: 048
     Dates: start: 20151211, end: 20160614
  9. BISPHOSPHONATES [Concomitant]
     Active Substance: UNSPECIFIED INGREDIENT
     Indication: DIARRHOEA
     Route: 065

REACTIONS (5)
  - Diabetic ketoacidosis [Recovered/Resolved]
  - Vulvovaginal candidiasis [Recovered/Resolved]
  - Gastroenteritis [Recovered/Resolved]
  - Upper respiratory tract infection [Recovered/Resolved]
  - Arthralgia [Recovered/Resolved]

NARRATIVE: CASE EVENT DATE: 2016
